FAERS Safety Report 5576094-7 (Version None)
Quarter: 2007Q4

REPORT INFORMATION
  Report Type: 
  Country: None (occurrence: None)
  Receive Date: 20071228
  Receipt Date: 20071217
  Transmission Date: 20080405
  Serious: Yes (Other)
  Sender: FDA-Public Use
  Company Number: US-BAYER-200712855BCC

PATIENT
  Age: 25 Year
  Sex: Female
  Weight: 50 kg

DRUGS (5)
  1. MIDOL EXTENDED RELIEF CAPLETS [Suspect]
     Indication: MENSTRUAL DISORDER
     Dosage: TOTAL DAILY DOSE: 220 MG  UNIT DOSE: 220 MG
     Route: 048
     Dates: start: 20070730, end: 20070730
  2. MIDOL EXTENDED RELIEF CAPLETS [Suspect]
     Dosage: TOTAL DAILY DOSE: 220 MG  UNIT DOSE: 220 MG
     Route: 048
     Dates: start: 20070830
  3. BENADRYL [Concomitant]
  4. PREDNISONE [Concomitant]
  5. ZYRTEC [Concomitant]

REACTIONS (6)
  - ANAPHYLACTIC SHOCK [None]
  - CONVULSION [None]
  - LOSS OF CONSCIOUSNESS [None]
  - PRURITUS [None]
  - SWELLING FACE [None]
  - TONGUE BITING [None]
